FAERS Safety Report 18726120 (Version 1)
Quarter: 2021Q1

REPORT INFORMATION
  Report Type: Spontaneous
  Country: FR (occurrence: FR)
  Receive Date: 20210111
  Receipt Date: 20210111
  Transmission Date: 20210419
  Serious: Yes (Death)
  Sender: FDA-Public Use
  Company Number: FR-ROCHE-2201379

PATIENT
  Age: 23 Year
  Sex: Female
  Weight: 53 kg

DRUGS (14)
  1. ROVALCYTE [Suspect]
     Active Substance: VALGANCICLOVIR HYDROCHLORIDE
     Indication: CYTOMEGALOVIRUS INFECTION
     Route: 048
     Dates: start: 20171224, end: 20180104
  2. AMLOR [Concomitant]
     Active Substance: AMLODIPINE BESYLATE
  3. SOLUPRED (FRANCE) [Concomitant]
     Active Substance: PREDNISOLONE SODIUM METAZOATE
  4. SOLUPRED (FRANCE) [Concomitant]
     Active Substance: PREDNISOLONE SODIUM METAZOATE
     Dates: start: 201706, end: 201801
  5. INEXIUM [Concomitant]
     Active Substance: ESOMEPRAZOLE
  6. ZARZIO [Concomitant]
     Active Substance: FILGRASTIM
  7. ADOPORT [Concomitant]
     Active Substance: TACROLIMUS
  8. CREON [Concomitant]
     Active Substance: PANCRELIPASE AMYLASE\PANCRELIPASE LIPASE\PANCRELIPASE PROTEASE
  9. FUNGIZONE [Concomitant]
     Active Substance: AMPHOTERICIN B
  10. ADOPORT [Concomitant]
     Active Substance: TACROLIMUS
     Dates: start: 201706
  11. METHOTREXATE. [Suspect]
     Active Substance: METHOTREXATE
     Indication: PRODUCT USED FOR UNKNOWN INDICATION
     Route: 037
     Dates: start: 20171223
  12. ZITHROMAX [Concomitant]
     Active Substance: AZITHROMYCIN DIHYDRATE
  13. PIVALONE [Concomitant]
     Route: 045
  14. CHOLURSO [Concomitant]
     Active Substance: URSODIOL

REACTIONS (1)
  - Pancytopenia [Fatal]

NARRATIVE: CASE EVENT DATE: 20171227
